FAERS Safety Report 6964769-4 (Version None)
Quarter: 2010Q3

REPORT INFORMATION
  Report Type: 
  Country: None (occurrence: None)
  Receive Date: 20100903
  Receipt Date: 20100825
  Transmission Date: 20110219
  Serious: Yes (Hospitalization)
  Sender: FDA-Public Use
  Company Number: US-PFIZER INC-2010107721

PATIENT
  Sex: Male

DRUGS (2)
  1. GEODON [Suspect]
     Dosage: UNK
  2. METHADONE HCL [Suspect]
     Dosage: UNK

REACTIONS (1)
  - ABDOMINAL PAIN [None]
